FAERS Safety Report 12610765 (Version 1)
Quarter: 2016Q3

REPORT INFORMATION
  Report Type: Report from Study
  Country: US (occurrence: US)
  Receive Date: 20160801
  Receipt Date: 20160801
  Transmission Date: 20161109
  Serious: Yes (Hospitalization, Other)
  Sender: FDA-Public Use
  Company Number: US-AMGEN-USASL2016097678

PATIENT
  Age: 54 Year
  Sex: Male

DRUGS (1)
  1. ENBREL [Suspect]
     Active Substance: ETANERCEPT
     Indication: PSORIATIC ARTHROPATHY
     Dosage: 50 MG, QWK
     Route: 065
     Dates: start: 2000, end: 2016

REACTIONS (9)
  - Mobility decreased [Unknown]
  - Hospitalisation [Unknown]
  - Visual acuity reduced [Unknown]
  - Cardiac disorder [Unknown]
  - Osteoarthritis [Unknown]
  - Depression [Unknown]
  - Malaise [Unknown]
  - Uveitis [Unknown]
  - Fall [Unknown]

NARRATIVE: CASE EVENT DATE: 2016
